FAERS Safety Report 23077947 (Version 1)
Quarter: 2023Q4

REPORT INFORMATION
  Report Type: Spontaneous
  Country: DE (occurrence: DE)
  Receive Date: 20231018
  Receipt Date: 20231018
  Transmission Date: 20240109
  Serious: Yes (Hospitalization)
  Sender: FDA-Public Use
  Company Number: DE-drreddys-LIT/GER/23/0179771

PATIENT
  Age: 3 Decade
  Sex: Female

DRUGS (5)
  1. FONDAPARINUX [Suspect]
     Active Substance: FONDAPARINUX
     Indication: Product used for unknown indication
  2. FONDAPARINUX [Suspect]
     Active Substance: FONDAPARINUX
  3. FONDAPARINUX [Suspect]
     Active Substance: FONDAPARINUX
     Dosage: AGAIN INCREASED TO HER INITIAL PREGNANCY DOSE OF 10 MG/DAY
  4. HEPARIN [Concomitant]
     Active Substance: HEPARIN SODIUM
     Indication: Anticoagulant therapy
  5. APIXABAN [Concomitant]
     Active Substance: APIXABAN
     Indication: Product used for unknown indication

REACTIONS (3)
  - Subchorionic haematoma [Unknown]
  - Arterial thrombosis [Unknown]
  - Exposure during pregnancy [Unknown]
